FAERS Safety Report 8897974 (Version 2)
Quarter: 2012Q4

REPORT INFORMATION
  Report Type: 
  Country: US (occurrence: US)
  Receive Date: 20121109
  Receipt Date: 20121123
  Transmission Date: 20130627
  Serious: Yes (Hospitalization)
  Sender: FDA-Public Use
  Company Number: US-MERCK-1210USA012906

PATIENT
  Age: 35 Year
  Sex: Female

DRUGS (3)
  1. JANUVIA [Suspect]
     Indication: TYPE 2 DIABETES MELLITUS
     Dosage: 100 mg, qd
     Route: 048
     Dates: start: 20120425
  2. ZOCOR [Concomitant]
     Dosage: 20 mg, UNK
  3. GLUCOTROL [Concomitant]
     Dosage: 10 mg, UNK

REACTIONS (1)
  - Convulsion [Not Recovered/Not Resolved]
